FAERS Safety Report 4889986-9 (Version None)
Quarter: 2006Q1

REPORT INFORMATION
  Report Type: 
  Country: None (occurrence: None)
  Receive Date: 20060124
  Receipt Date: 20060113
  Transmission Date: 20060701
  Serious: Yes (Hospitalization)
  Sender: FDA-Public Use
  Company Number: US-JNJFOC-20060103209

PATIENT
  Sex: Male
  Weight: 67.13 kg

DRUGS (7)
  1. INFLIXIMAB [Suspect]
     Indication: CROHN'S DISEASE
     Dosage: 3 INFUSIONS RECEIVED PRIOR TO BASELINE
     Route: 042
  2. MERCAPTOPURINE [Concomitant]
     Indication: CROHN'S DISEASE
  3. MESALAMINE [Concomitant]
     Indication: CROHN'S DISEASE
  4. ANTIBIOTICS [Concomitant]
     Indication: CROHN'S DISEASE
  5. NARCOTIC ANALGESICS [Concomitant]
     Indication: CROHN'S DISEASE
  6. ANTIDEPRESSANTS [Concomitant]
     Indication: CROHN'S DISEASE
  7. PREDNISONE [Concomitant]
     Indication: CROHN'S DISEASE

REACTIONS (2)
  - CROHN'S DISEASE [None]
  - DRUG WITHDRAWAL SYNDROME [None]
